FAERS Safety Report 4757010-4 (Version None)
Quarter: 2005Q3

REPORT INFORMATION
  Report Type: 
  Country: None (occurrence: None)
  Receive Date: 20050823
  Receipt Date: 20050809
  Transmission Date: 20060218
  Serious: Yes (Other)
  Sender: FDA-Public Use
  Company Number: 200510091BCA

PATIENT
  Age: 27 Year
  Sex: Male

DRUGS (6)
  1. GAMUNEX [Suspect]
     Indication: GUILLAIN-BARRE SYNDROME
     Dosage: 20 G, TOTAL DAILY, INTRAVENOUS; 10 G, TOTAL DAILY, INTRAVENOUS; 20 G, TOTAL DAILY, INTRAVENOUS
     Route: 042
     Dates: end: 20050201
  2. GAMUNEX [Suspect]
     Indication: GUILLAIN-BARRE SYNDROME
     Dosage: 20 G, TOTAL DAILY, INTRAVENOUS; 10 G, TOTAL DAILY, INTRAVENOUS; 20 G, TOTAL DAILY, INTRAVENOUS
     Route: 042
     Dates: end: 20050201
  3. GAMUNEX [Suspect]
     Indication: GUILLAIN-BARRE SYNDROME
     Dosage: 20 G, TOTAL DAILY, INTRAVENOUS; 10 G, TOTAL DAILY, INTRAVENOUS; 20 G, TOTAL DAILY, INTRAVENOUS
     Route: 042
     Dates: end: 20050203
  4. GAMUNEX [Suspect]
  5. GAMUNEX [Suspect]
  6. GAMIMUNE N 10% [Suspect]
     Dosage: 10 G, TOTAL DAILY, INTRAVENOUS
     Route: 042
     Dates: start: 20050202

REACTIONS (5)
  - BLOOD LACTATE DEHYDROGENASE INCREASED [None]
  - HAEMOLYTIC ANAEMIA [None]
  - HEPATIC ENZYME ABNORMAL [None]
  - PHARMACEUTICAL PRODUCT COMPLAINT [None]
  - TRANSFUSION REACTION [None]
